FAERS Safety Report 9484996 (Version 1)
Quarter: 2013Q3

REPORT INFORMATION
  Report Type: Spontaneous
  Country: RO (occurrence: RO)
  Receive Date: 20130828
  Receipt Date: 20130828
  Transmission Date: 20140515
  Serious: Yes (Other)
  Sender: FDA-Public Use
  Company Number: RO-ASTRAZENECA-2013SE64583

PATIENT
  Sex: Female

DRUGS (2)
  1. FASLODEX [Suspect]
     Indication: BREAST CANCER
     Route: 030
     Dates: start: 2009, end: 201306
  2. ACIDUM ZOLENDRONICUM [Concomitant]
     Dates: start: 2009, end: 201306

REACTIONS (1)
  - Metastasis [Unknown]
